FAERS Safety Report 19906963 (Version 1)
Quarter: 2021Q3

REPORT INFORMATION
  Report Type: Spontaneous
  Country: US (occurrence: US)
  Receive Date: 20210930
  Receipt Date: 20210930
  Transmission Date: 20211014
  Serious: No
  Sender: FDA-Public Use
  Company Number: None

PATIENT
  Age: 46 Year
  Sex: Female

DRUGS (1)
  1. ENBREL [Suspect]
     Active Substance: ETANERCEPT
     Indication: ANKYLOSING SPONDYLITIS
     Route: 058
     Dates: start: 20210823, end: 20210823

REACTIONS (6)
  - Schizophrenia [None]
  - Hallucination [None]
  - Arthralgia [None]
  - Dyskinesia [None]
  - Paraesthesia [None]
  - Paranoia [None]

NARRATIVE: CASE EVENT DATE: 20210823
